FAERS Safety Report 5569498-X (Version None)
Quarter: 2007Q4

REPORT INFORMATION
  Report Type: 
  Country: None (occurrence: None)
  Receive Date: 20071220
  Receipt Date: 20071219
  Transmission Date: 20080405
  Serious: Yes (Death)
  Sender: FDA-Public Use
  Company Number: JP-WYE-H01810107

PATIENT
  Sex: Male
  Weight: 60 kg

DRUGS (10)
  1. AMIODARONE HCL [Suspect]
     Indication: VENTRICULAR TACHYCARDIA
     Dosage: 10 ML/MIN
     Route: 040
     Dates: start: 20071109, end: 20071109
  2. AMIODARONE HCL [Suspect]
     Dosage: 33 ML/HOUR
     Route: 041
     Dates: start: 20071109, end: 20071109
  3. AMIODARONE HCL [Suspect]
     Dosage: 25 ML/HOUR
     Route: 041
     Dates: start: 20071109, end: 20071110
  4. AMIODARONE HCL [Suspect]
     Dosage: 15 ML/HOUR
     Route: 041
     Dates: start: 20071110
  5. MUSCULAX [Concomitant]
     Indication: VENTRICULAR TACHYCARDIA
     Dosage: 48 MG (FREQUENCY UNSPECIFIED)
     Dates: start: 20071109, end: 20071109
  6. DOBUTREX [Concomitant]
  7. MIDAZOLAM HCL [Concomitant]
     Indication: VENTRICULAR TACHYCARDIA
     Dosage: 120 G (FREQUENCY UNSPECIFIED)
     Dates: start: 20071109, end: 20071109
  8. LIDOCAINE [Concomitant]
     Dosage: 50 MG (FREQUENCY UNSPECIFIED)
     Route: 042
     Dates: start: 20071107, end: 20071109
  9. LIDOCAINE [Concomitant]
     Dosage: 1 GRAM (FREQUENCY UNSPECIFIED)
     Route: 042
     Dates: start: 20071109, end: 20071109
  10. CATABON [Concomitant]
     Dosage: 2 TO 10 G (FREQUENCY UNSPECIFIED)
     Dates: start: 20071109, end: 20071109

REACTIONS (2)
  - CARDIAC PACEMAKER MALFUNCTION [None]
  - DRUG INEFFECTIVE [None]
